FAERS Safety Report 8489014 (Version 5)
Quarter: 2017Q4

REPORT INFORMATION
  Report Type: Spontaneous
  Country: PR (occurrence: US)
  Receive Date: 20120402
  Receipt Date: 20171117
  Transmission Date: 20180321
  Serious: Yes (Hospitalization, Other)
  Sender: FDA-Public Use
  Company Number: PR-009507513-1204USA00035

PATIENT
  Sex: Female
  Weight: 67.12 kg

DRUGS (13)
  1. VITAMIN D [Concomitant]
     Active Substance: CHOLECALCIFEROL
     Dosage: 800 U, UNK
     Dates: start: 1997
  2. DAYPRO [Concomitant]
     Active Substance: OXAPROZIN
     Indication: HYPERTENSION
  3. CALCIUM (UNSPECIFIED) [Concomitant]
     Active Substance: CALCIUM
     Dosage: 1200 U, UNK
     Dates: start: 1997
  4. METHOTREXATE. [Concomitant]
     Active Substance: METHOTREXATE
     Indication: RHEUMATOID ARTHRITIS
     Dosage: UNK
  5. FOSAMAX [Suspect]
     Active Substance: ALENDRONATE SODIUM
     Indication: OSTEOPOROSIS
     Dosage: 70 MG, QW
     Route: 048
     Dates: start: 20001213, end: 20101125
  6. COUMADIN [Concomitant]
     Active Substance: WARFARIN SODIUM
     Indication: ATRIAL FIBRILLATION
     Dates: start: 1991, end: 2012
  7. MK-9359 [Concomitant]
     Indication: ATRIAL FIBRILLATION
     Dates: start: 1991, end: 2012
  8. FOSAMAX [Suspect]
     Active Substance: ALENDRONATE SODIUM
     Dosage: 10 MG, UNK
     Route: 048
     Dates: start: 19991220, end: 20001206
  9. FOSAMAX PLUS D [Suspect]
     Active Substance: ALENDRONATE SODIUM\CHOLECALCIFEROL
     Indication: OSTEOPOROSIS
     Dosage: 70 MG, UNK
     Route: 048
     Dates: start: 199707, end: 201003
  10. ALENDRONATE SODIUM. [Suspect]
     Active Substance: ALENDRONATE SODIUM
     Indication: OSTEOPOROSIS
     Dosage: 70 MG, UNK
     Route: 048
     Dates: start: 20080822, end: 20090621
  11. TENORMIN [Concomitant]
     Active Substance: ATENOLOL
  12. SYNTHROID [Concomitant]
     Active Substance: LEVOTHYROXINE SODIUM
     Indication: HYPOTHYROIDISM
  13. LEVOTHYROXINE SODIUM. [Concomitant]
     Active Substance: LEVOTHYROXINE SODIUM
     Indication: HYPOTHYROIDISM

REACTIONS (27)
  - Cholecystectomy [Unknown]
  - Anxiety [Unknown]
  - Fear [Unknown]
  - Hysterectomy [Unknown]
  - Type IIa hyperlipidaemia [Unknown]
  - Diverticulum [Unknown]
  - Muscle spasms [Unknown]
  - Abdominal pain lower [Unknown]
  - Femur fracture [Recovered/Resolved]
  - Liver function test increased [Unknown]
  - Explorative laparotomy [Unknown]
  - Low turnover osteopathy [Unknown]
  - Hypokinesia [Unknown]
  - Depression [Unknown]
  - Syncope [Unknown]
  - Intestinal obstruction [Unknown]
  - Open reduction of fracture [Unknown]
  - Upper respiratory tract infection [Unknown]
  - Osteoarthritis [Unknown]
  - Pain in extremity [Unknown]
  - Arrhythmia [Unknown]
  - Fall [Unknown]
  - Sleep disorder [Unknown]
  - Bone disorder [Unknown]
  - Foot fracture [Unknown]
  - Pain in extremity [Unknown]
  - Impaired healing [Unknown]

NARRATIVE: CASE EVENT DATE: 19980107
